FAERS Safety Report 25676970 (Version 4)
Quarter: 2025Q3

REPORT INFORMATION
  Report Type: Report from Study
  Country: JP (occurrence: JP)
  Receive Date: 20250813
  Receipt Date: 20250828
  Transmission Date: 20251020
  Serious: Yes (Hospitalization, Other)
  Sender: ALEXION PHARMACEUTICALS
  Company Number: JP-ASTRAZENECA-202508JPN000702JP

PATIENT
  Age: 54 Year
  Sex: Female
  Weight: 65.3 kg

DRUGS (1)
  1. TEZEPELUMAB [Suspect]
     Active Substance: TEZEPELUMAB
     Indication: Asthma

REACTIONS (2)
  - Deep vein thrombosis [Unknown]
  - Foot fracture [Unknown]

NARRATIVE: CASE EVENT DATE: 20241201
